FAERS Safety Report 13882467 (Version 1)
Quarter: 2017Q3

REPORT INFORMATION
  Report Type: Spontaneous
  Country: US (occurrence: US)
  Receive Date: 20170818
  Receipt Date: 20170818
  Transmission Date: 20171127
  Serious: Yes (Death)
  Sender: FDA-Public Use
  Company Number: US-FRESENIUS MEDICAL CARE RENAL THERAPIES GROUP-FMC-1708-000870

PATIENT
  Age: 60 Year
  Sex: Female

DRUGS (8)
  1. HYDROXYZINE [Concomitant]
     Active Substance: HYDROXYZINE HYDROCHLORIDE
  2. METOPROLOL. [Concomitant]
     Active Substance: METOPROLOL
  3. DELFLEX [Suspect]
     Active Substance: CALCIUM CHLORIDE\DEXTROSE\MAGNESIUM CHLORIDE\SODIUM CHLORIDE\SODIUM LACTATE
     Indication: END STAGE RENAL DISEASE
     Route: 033
     Dates: start: 20170401
  4. PLAVIX [Concomitant]
     Active Substance: CLOPIDOGREL BISULFATE
  5. ASPIRIN. [Concomitant]
     Active Substance: ASPIRIN
  6. LANTUS [Concomitant]
     Active Substance: INSULIN GLARGINE
  7. NOVOLOG [Concomitant]
     Active Substance: INSULIN ASPART
  8. ZOFRAN [Concomitant]
     Active Substance: ONDANSETRON HYDROCHLORIDE

REACTIONS (1)
  - Sepsis [Fatal]

NARRATIVE: CASE EVENT DATE: 20170708
